FAERS Safety Report 8286576-5 (Version None)
Quarter: 2012Q1

REPORT INFORMATION
  Report Type: 
  Country: None (occurrence: None)
  Receive Date: 20120323
  Receipt Date: 20120314
  Transmission Date: 20120608
  Serious: Yes (Other)
  Sender: FDA-Public Use
  Company Number: 2011030611

PATIENT
  Age: 40 Year
  Sex: Female
  Weight: 113.8529 kg

DRUGS (50)
  1. HIZENTRA [Suspect]
     Indication: HYPOGLOBULINAEMIA
     Dosage: SUBCUTANEOUS
     Route: 058
  2. HIZENTRA [Suspect]
     Indication: IMMUNODEFICIENCY
     Dosage: SUBCUTANEOUS
     Route: 058
  3. ABILIFY [Concomitant]
  4. SPIRIVA [Concomitant]
  5. REQUIP (ROPINIROLE HDROCHLORIDE) [Concomitant]
  6. MAGOX (MAGNESIUM) [Concomitant]
  7. HIZENTRA [Suspect]
     Indication: HYPOGLOBULINAEMIA
     Dosage: 4 GM (20 ML) ON SIX SITES OVER 1 HOUR 52 MINUTES, SUBCUTANEOUS
     Route: 058
  8. HIZENTRA [Suspect]
     Indication: IMMUNODEFICIENCY
     Dosage: 4 GM (20 ML) ON SIX SITES OVER 1 HOUR 52 MINUTES, SUBCUTANEOUS
     Route: 058
  9. CLONAZEPAM [Concomitant]
  10. WELLBUTRIN XL [Concomitant]
  11. SYMBICORT [Concomitant]
  12. ALBUTEROL [Concomitant]
  13. CLARITIN [Concomitant]
  14. HIZENTRA [Suspect]
     Indication: IMMUNODEFICIENCY
     Dosage: 23 G 1X/WEEK, 115 ML VIA 6 SITES OVER 1 HOUR 52 MINUTES, SUBCUTANEOUS
     Route: 058
     Dates: start: 20110313
  15. HIZENTRA [Suspect]
     Indication: HYPOGLOBULINAEMIA
     Dosage: 23 G 1X/WEEK, 115 ML VIA 6 SITES OVER 1 HOUR 52 MINUTES, SUBCUTANEOUS
     Route: 058
     Dates: start: 20110313
  16. HIZENTRA [Suspect]
     Indication: HYPOGLOBULINAEMIA
     Dates: start: 20111210
  17. HIZENTRA [Suspect]
     Indication: IMMUNODEFICIENCY
     Dates: start: 20111210
  18. HIZENTRA [Suspect]
     Indication: HYPOGLOBULINAEMIA
     Dosage: 2 GM (10 ML) ON SIX SITES OVER 1 HOUR 52 MINUTES SUBCUTANEOUS
     Route: 058
  19. HIZENTRA [Suspect]
     Indication: IMMUNODEFICIENCY
     Dosage: 2 GM (10 ML) ON SIX SITES OVER 1 HOUR 52 MINUTES SUBCUTANEOUS
     Route: 058
  20. VALTREX [Concomitant]
  21. DOCUSATE POTASSIUM [Concomitant]
  22. MULTI-VITAMIN [Concomitant]
  23. LEVOTHYROXINE SODIUM [Concomitant]
  24. TYLENOL WITH CODEINE (PANADEINE CO) [Concomitant]
  25. HIZENTRA [Suspect]
     Indication: IMMUNODEFICIENCY
     Dates: start: 20111210
  26. HIZENTRA [Suspect]
     Indication: HYPOGLOBULINAEMIA
     Dates: start: 20111210
  27. ADDERALL (OBETROL) [Concomitant]
  28. OPTIVAR [Concomitant]
  29. PERCOCET [Concomitant]
  30. MELOXICAM [Concomitant]
  31. TOPAMAX [Concomitant]
  32. LIPITOR [Concomitant]
  33. PRO-AIR HFA (PROCATEROL HYDROCHLORIDE) [Concomitant]
  34. RANTITIDINE [Concomitant]
  35. XENICAL [Concomitant]
  36. BUSPAR [Concomitant]
  37. MIRALAX [Concomitant]
  38. HIZENTRA [Suspect]
     Indication: HYPOGLOBULINAEMIA
     Dates: start: 20111210
  39. HIZENTRA [Suspect]
     Indication: IMMUNODEFICIENCY
     Dates: start: 20111210
  40. HIZENTRA [Suspect]
     Indication: IMMUNODEFICIENCY
     Dosage: 23 G 1X/WEEK, (115 ML) 6 SITES OVER 1 HOUR 52 MINUTES, SUBCUTANEOUS
     Route: 058
     Dates: start: 20120310
  41. HIZENTRA [Suspect]
     Indication: HYPOGLOBULINAEMIA
     Dosage: 23 G 1X/WEEK, (115 ML) 6 SITES OVER 1 HOUR 52 MINUTES, SUBCUTANEOUS
     Route: 058
     Dates: start: 20120310
  42. HIZENTRA [Suspect]
     Indication: HYPOGLOBULINAEMIA
     Dosage: SUBCUTANEOUS
     Route: 058
  43. HIZENTRA [Suspect]
     Indication: IMMUNODEFICIENCY
     Dosage: SUBCUTANEOUS
     Route: 058
  44. SINGULAIR [Concomitant]
  45. ESTRADIOL [Concomitant]
  46. PREVACID [Concomitant]
  47. HYDROCODONE APAP (PROCET) [Concomitant]
  48. SAVELLA [Concomitant]
  49. CACIUM [Concomitant]
  50. IRON [Concomitant]

REACTIONS (3)
  - SINUSITIS [None]
  - UPPER RESPIRATORY TRACT INFECTION [None]
  - CANDIDIASIS [None]
